FAERS Safety Report 17859559 (Version 1)
Quarter: 2020Q2

REPORT INFORMATION
  Report Type: Spontaneous
  Country: US (occurrence: US)
  Receive Date: 20200604
  Receipt Date: 20200604
  Transmission Date: 20200714
  Serious: Yes (Life-Threatening, Hospitalization, Disabling)
  Sender: FDA-Public Use
  Company Number: US-BAYER-2020-100383

PATIENT
  Age: 70 Year
  Sex: Male

DRUGS (3)
  1. BAYER LOW DOSE [Suspect]
     Active Substance: ASPIRIN
     Dosage: 81 MG, QD
  2. APIXABAN [Interacting]
     Active Substance: APIXABAN
     Dosage: 5 MG, BID
  3. TICAGRELOR. [Interacting]
     Active Substance: TICAGRELOR
     Dosage: 90 MG, BID

REACTIONS (6)
  - Hemiplegia [None]
  - Aphasia [None]
  - Labelled drug-drug interaction medication error [None]
  - Haemorrhage intracranial [None]
  - Facial paralysis [None]
  - Brain midline shift [None]
